FAERS Safety Report 17128833 (Version 3)
Quarter: 2019Q4

REPORT INFORMATION
  Report Type: Report from Study
  Country: TW (occurrence: TW)
  Receive Date: 20191209
  Receipt Date: 20191230
  Transmission Date: 20200122
  Serious: Yes (Death, Hospitalization, Other)
  Sender: FDA-Public Use
  Company Number: TW-GILEAD-2019-0438213

PATIENT
  Age: 71 Year
  Sex: Female
  Weight: 37.2 kg

DRUGS (29)
  1. CRAVIT [Concomitant]
     Active Substance: LEVOFLOXACIN
  2. NEXIUM I.V. [Concomitant]
     Active Substance: ESOMEPRAZOLE SODIUM
     Indication: GASTRITIS
  3. CEFTAZIDIME. [Concomitant]
     Active Substance: CEFTAZIDIME
  4. SEROQUEL [Concomitant]
     Active Substance: QUETIAPINE FUMARATE
  5. FENTANYL. [Concomitant]
     Active Substance: FENTANYL
  6. NORVASC [Concomitant]
     Active Substance: AMLODIPINE BESYLATE
  7. ANCOGEN [Concomitant]
  8. VANCOMYCIN [Concomitant]
     Active Substance: VANCOMYCIN
  9. CLARITROMYCINE [Concomitant]
     Active Substance: CLARITHROMYCIN
  10. INSULIN [Concomitant]
     Active Substance: INSULIN NOS
  11. ULTRACET [Concomitant]
     Active Substance: ACETAMINOPHEN\TRAMADOL HYDROCHLORIDE
  12. APRESOLINE HYDROCHLORIDE [Concomitant]
     Active Substance: HYDRALAZINE HYDROCHLORIDE
  13. XANAX [Concomitant]
     Active Substance: ALPRAZOLAM
  14. HOMOCLOMIN [HOMOCHLORCYCLIZINE HYDROCHLORIDE] [Concomitant]
  15. POTASSIUM [Concomitant]
     Active Substance: POTASSIUM
  16. ISOBIDE [ISOSORBIDE] [Concomitant]
  17. DIOVAN [Concomitant]
     Active Substance: VALSARTAN
  18. GALVUS [Concomitant]
     Active Substance: VILDAGLIPTIN
  19. TAZOCIN [Concomitant]
     Active Substance: PIPERACILLIN SODIUM\TAZOBACTAM SODIUM
  20. GLYCYRRHIZIN [GLYCYRRHIZA GLABRA] [Concomitant]
  21. DIFLUCAN [Concomitant]
     Active Substance: FLUCONAZOLE
  22. LEVOFLOXACIN. [Concomitant]
     Active Substance: LEVOFLOXACIN
  23. FEBURIC [Concomitant]
     Active Substance: FEBUXOSTAT
  24. CORTISON [Concomitant]
     Active Substance: CORTISONE ACETATE
  25. LEVOPHED [Concomitant]
     Active Substance: NOREPINEPHRINE BITARTRATE
  26. BROSYM [Concomitant]
     Active Substance: CEFOPERAZONE SODIUM\SULBACTAM SODIUM
  27. ULEX [CROTAMITON] [Concomitant]
  28. SOFOSBUVIR W/VELPATASVIR [Suspect]
     Active Substance: SOFOSBUVIR\VELPATASVIR
     Indication: HEPATITIS C
     Dosage: 1 DOSAGE FORM
     Route: 048
     Dates: start: 20190627, end: 20190918
  29. ELTROXIN [Concomitant]
     Active Substance: LEVOTHYROXINE

REACTIONS (2)
  - Septic shock [Fatal]
  - Pneumonia [Not Recovered/Not Resolved]

NARRATIVE: CASE EVENT DATE: 20190923
